FAERS Safety Report 22202257 (Version 2)
Quarter: 2023Q2

REPORT INFORMATION
  Report Type: Report from Study
  Country: GB (occurrence: GB)
  Receive Date: 20230412
  Receipt Date: 20230415
  Transmission Date: 20230722
  Serious: Yes (Hospitalization)
  Sender: FDA-Public Use
  Company Number: GB-IPSEN Group, Research and Development-2020-03320

PATIENT
  Sex: Female

DRUGS (1)
  1. LANREOTIDE ACETATE [Suspect]
     Active Substance: LANREOTIDE ACETATE
     Indication: Neuroendocrine tumour
     Route: 058

REACTIONS (2)
  - Gastrointestinal disorder [Not Recovered/Not Resolved]
  - Product dose omission issue [Unknown]
